FAERS Safety Report 17067203 (Version 1)
Quarter: 2019Q4

REPORT INFORMATION
  Report Type: Report from Study
  Country: None (occurrence: US)
  Receive Date: 20191122
  Receipt Date: 20191122
  Transmission Date: 20200122
  Serious: Yes (Hospitalization)
  Sender: FDA-Public Use
  Company Number: US-ABBVIE-19P-163-3012722-00

PATIENT
  Sex: Female

DRUGS (1)
  1. SKYRIZI [Suspect]
     Active Substance: RISANKIZUMAB-RZAA
     Indication: PSORIASIS
     Dosage: FREQUENCY: AT WEEK 0 AND 4
     Route: 058
     Dates: start: 201906

REACTIONS (6)
  - Diverticulitis [Unknown]
  - Gastrointestinal infection [Unknown]
  - Pneumonia [Unknown]
  - Immune system disorder [Unknown]
  - Diverticulitis [Unknown]
  - Urinary tract infection [Unknown]

NARRATIVE: CASE EVENT DATE: 2019
